FAERS Safety Report 25064361 (Version 1)
Quarter: 2025Q1

REPORT INFORMATION
  Report Type: Spontaneous
  Country: CA (occurrence: CA)
  Receive Date: 20250311
  Receipt Date: 20250311
  Transmission Date: 20250409
  Serious: Yes (Other)
  Sender: BAUSCH AND LOMB
  Company Number: CA-BAUSCH-BL-2024-019016

PATIENT
  Weight: 85.806 kg

DRUGS (3)
  1. FLUOROURACIL [Suspect]
     Active Substance: FLUOROURACIL
     Indication: Squamous cell carcinoma
     Route: 065
  2. FLUOROURACIL [Suspect]
     Active Substance: FLUOROURACIL
     Dosage: NOT SPECIFIED
     Route: 041
  3. TELMISARTAN [Concomitant]
     Active Substance: TELMISARTAN
     Indication: Product used for unknown indication

REACTIONS (6)
  - Illness [Recovering/Resolving]
  - Visual impairment [Recovering/Resolving]
  - Dysuria [Recovering/Resolving]
  - Incorrect drug administration rate [Recovering/Resolving]
  - Accidental overdose [Recovering/Resolving]
  - Device infusion issue [Recovering/Resolving]
